FAERS Safety Report 7874925-9 (Version None)
Quarter: 2011Q4

REPORT INFORMATION
  Report Type: 
  Country: None (occurrence: None)
  Receive Date: 20111031
  Receipt Date: 20111026
  Transmission Date: 20120403
  Serious: Yes (Life-Threatening, Hospitalization)
  Sender: FDA-Public Use
  Company Number: US-US-EMD SERONO, INC.-7080273

PATIENT
  Sex: Female

DRUGS (6)
  1. REBIF [Suspect]
     Indication: RELAPSING-REMITTING MULTIPLE SCLEROSIS
     Route: 058
     Dates: start: 20110613, end: 20110920
  2. REBIF [Suspect]
     Route: 058
     Dates: start: 20110920
  3. MORPHINE [Concomitant]
     Indication: TRIGEMINAL NEURALGIA
  4. METOPROLOL [Concomitant]
     Indication: HYPERTENSION
  5. ZOFRAN [Concomitant]
     Indication: NAUSEA
  6. WELLBUTRIN [Concomitant]
     Indication: DEPRESSION

REACTIONS (8)
  - COMA [None]
  - URINE COLOUR ABNORMAL [None]
  - DIVERTICULITIS [None]
  - MYOCARDIAL INFARCTION [None]
  - WEIGHT DECREASED [None]
  - INJECTION SITE PAIN [None]
  - CLOSTRIDIAL INFECTION [None]
  - INJECTION SITE HAEMATOMA [None]
